FAERS Safety Report 21409889 (Version 1)
Quarter: 2022Q4

REPORT INFORMATION
  Report Type: Spontaneous
  Country: FR (occurrence: FR)
  Receive Date: 20221005
  Receipt Date: 20221005
  Transmission Date: 20230113
  Serious: Yes (Hospitalization)
  Sender: FDA-Public Use
  Company Number: FR-KARYOPHARM THERAPEUTICS, INC.-2022KPT001160

PATIENT

DRUGS (1)
  1. SELINEXOR [Suspect]
     Active Substance: SELINEXOR
     Indication: Plasma cell myeloma
     Dosage: 80 MG
     Route: 048
     Dates: start: 202203

REACTIONS (2)
  - Peripheral arterial occlusive disease [Recovering/Resolving]
  - Vascular graft occlusion [Recovering/Resolving]

NARRATIVE: CASE EVENT DATE: 20220701
